FAERS Safety Report 10022315 (Version 3)
Quarter: 2014Q2

REPORT INFORMATION
  Report Type: Spontaneous
  Country: US (occurrence: US)
  Receive Date: 20140319
  Receipt Date: 20140529
  Transmission Date: 20141212
  Serious: No
  Sender: FDA-Public Use
  Company Number: US-GILEAD-2014-0097050

PATIENT
  Age: 71 Year
  Sex: Female

DRUGS (6)
  1. LETAIRIS [Suspect]
     Indication: PULMONARY HYPERTENSION
     Route: 065
     Dates: start: 20111230, end: 20140313
  2. LETAIRIS [Suspect]
     Indication: CONNECTIVE TISSUE DISORDER
  3. LETAIRIS [Suspect]
     Indication: PULMONARY FIBROSIS
  4. REMODULIN [Concomitant]
     Route: 065
  5. REVATIO [Concomitant]
     Route: 065
  6. NIFEDIPINE [Concomitant]
     Route: 065

REACTIONS (2)
  - Oedema [Unknown]
  - Swelling [Unknown]
